FAERS Safety Report 22691776 (Version 2)
Quarter: 2024Q1

REPORT INFORMATION
  Report Type: Spontaneous
  Country: CN (occurrence: CN)
  Receive Date: 20230711
  Receipt Date: 20240226
  Transmission Date: 20240410
  Serious: Yes (Other)
  Sender: FDA-Public Use
  Company Number: CN-PFIZER INC-PV202300118889

PATIENT
  Age: 8 Year
  Sex: Male
  Weight: 42 kg

DRUGS (10)
  1. ZITHROMAX [Suspect]
     Active Substance: AZITHROMYCIN DIHYDRATE
     Indication: Pneumonia
     Dosage: 0.42 G, 1X/DAY
     Route: 041
     Dates: start: 20230630, end: 20230702
  2. PULMICORT TURBUHALER [Concomitant]
     Active Substance: BUDESONIDE
     Indication: Pneumonia
     Dosage: 1 MG, 3X/DAY
     Route: 055
     Dates: start: 20230630, end: 20230705
  3. ATROVENT [Concomitant]
     Active Substance: IPRATROPIUM BROMIDE
     Indication: Pneumonia
     Dosage: 250 UG, 3X/DAY
     Route: 055
     Dates: start: 20230630, end: 20230705
  4. GLYCINE\GLYCYRRHIZIN\METHIONINE [Concomitant]
     Active Substance: GLYCINE\GLYCYRRHIZIN\METHIONINE
     Indication: Hepatic function abnormal
     Dosage: 40 ML, 1X/DAY
     Route: 041
     Dates: start: 20230701, end: 20230705
  5. CHLORPHENAMINE/GUAIFENESIN/METHYLEPHEDRINE [Concomitant]
     Indication: Pneumonia
     Dosage: 11 ML, 3X/DAY
     Route: 048
     Dates: start: 20230701, end: 20230704
  6. SODIUM CHLORIDE [Concomitant]
     Active Substance: SODIUM CHLORIDE
     Indication: Pneumonia
     Dosage: 2 ML, 3X/DAY
     Route: 055
     Dates: start: 20230630, end: 20230705
  7. AMBROXOL HYDROCHLORIDE [Concomitant]
     Active Substance: AMBROXOL HYDROCHLORIDE
     Indication: Pneumonia
     Dosage: 15 MG, 1X/DAY
     Route: 041
     Dates: start: 20230630, end: 20230705
  8. DEXTROSE\SODIUM CHLORIDE [Concomitant]
     Active Substance: DEXTROSE\SODIUM CHLORIDE
     Indication: Vehicle solution use
     Dosage: 250 ML, 1X/DAY
     Route: 041
     Dates: start: 20230630, end: 20230702
  9. DEXTROSE\SODIUM CHLORIDE [Concomitant]
     Active Substance: DEXTROSE\SODIUM CHLORIDE
     Indication: Vehicle solution use
     Dosage: 50 ML, 1X/DAY
     Route: 041
     Dates: start: 20230630, end: 20230705
  10. DEXTROSE\SODIUM CHLORIDE [Concomitant]
     Active Substance: DEXTROSE\SODIUM CHLORIDE
     Indication: Vehicle solution use
     Dosage: 100 ML, 1X/DAY
     Route: 041
     Dates: start: 20230701, end: 20230705

REACTIONS (6)
  - Rash [Recovering/Resolving]
  - Pruritus [Recovering/Resolving]
  - Hand-foot-and-mouth disease [Recovering/Resolving]
  - Drug hypersensitivity [Recovering/Resolving]
  - Hepatic enzyme increased [Unknown]
  - Off label use [Unknown]

NARRATIVE: CASE EVENT DATE: 20230630
